FAERS Safety Report 17590720 (Version 1)
Quarter: 2020Q1

REPORT INFORMATION
  Report Type: Spontaneous
  Country: US (occurrence: US)
  Receive Date: 20200325
  Receipt Date: 20200325
  Transmission Date: 20200409
  Serious: Yes (Hospitalization)
  Sender: FDA-Public Use
  Company Number: None

PATIENT
  Age: 87 Year
  Sex: Male
  Weight: 78 kg

DRUGS (1)
  1. WARFARIN (WARFARIN NA (EXELAN) 1MG TAB [Suspect]
     Active Substance: WARFARIN
     Indication: ATRIAL FIBRILLATION
     Dates: start: 20140101, end: 20180812

REACTIONS (4)
  - Gastrointestinal haemorrhage [None]
  - Haemorrhage [None]
  - International normalised ratio increased [None]
  - Thrombocytopenia [None]

NARRATIVE: CASE EVENT DATE: 20180812
